FAERS Safety Report 11940018 (Version 2)
Quarter: 2016Q1

REPORT INFORMATION
  Report Type: Spontaneous
  Country: IT (occurrence: IT)
  Receive Date: 20160122
  Receipt Date: 20160223
  Transmission Date: 20160526
  Serious: Yes (Other)
  Sender: FDA-Public Use
  Company Number: IT-WATSON-2016-00858

PATIENT
  Age: 43 Year
  Sex: Male
  Weight: 75 kg

DRUGS (14)
  1. DELORAZEPAM [Concomitant]
     Active Substance: DELORAZEPAM
     Indication: HALLUCINATION, AUDITORY
     Dosage: 1 MG, DAILY
     Route: 048
  2. EMTRICITABINE W/TENOFOVIR [Concomitant]
     Active Substance: EMTRICITABINE\TENOFOVIR DISOPROXIL
     Indication: CEREBRAL TOXOPLASMOSIS
     Dosage: UNK
     Route: 065
  3. VORICONAZOLE (UNKNOWN) [Interacting]
     Active Substance: VORICONAZOLE
     Dosage: 250 MG, BID
     Route: 048
  4. ATOVAQUONE. [Concomitant]
     Active Substance: ATOVAQUONE
     Indication: CEREBRAL TOXOPLASMOSIS
     Dosage: UNK
     Route: 065
  5. AZITHROMYCIN ANHYDROUS. [Concomitant]
     Active Substance: AZITHROMYCIN ANHYDROUS
     Indication: CEREBRAL TOXOPLASMOSIS
     Dosage: UNK
     Route: 065
  6. VORICONAZOLE (UNKNOWN) [Interacting]
     Active Substance: VORICONAZOLE
     Dosage: 300 MG, BID
     Route: 042
  7. RALTEGRAVIR. [Concomitant]
     Active Substance: RALTEGRAVIR
     Indication: CEREBRAL TOXOPLASMOSIS
     Dosage: UNK
     Route: 065
  8. PREGABALIN. [Concomitant]
     Active Substance: PREGABALIN
     Indication: NEUROPATHY PERIPHERAL
     Dosage: UNK
     Route: 065
  9. VORICONAZOLE (UNKNOWN) [Interacting]
     Active Substance: VORICONAZOLE
     Dosage: 450 MG, DAILY
     Route: 042
  10. VORICONAZOLE (UNKNOWN) [Interacting]
     Active Substance: VORICONAZOLE
     Dosage: 200 MG, BID
     Route: 048
  11. PANTOPRAZOLE [Concomitant]
     Active Substance: PANTOPRAZOLE SODIUM
     Indication: NEUROPATHY PERIPHERAL
     Dosage: UNK
     Route: 065
  12. TRAMADOL. [Concomitant]
     Active Substance: TRAMADOL
     Indication: NEUROPATHY PERIPHERAL
     Dosage: UNK
     Route: 065
  13. VORICONAZOLE (UNKNOWN) [Interacting]
     Active Substance: VORICONAZOLE
     Indication: CEREBRAL TOXOPLASMOSIS
     Dosage: 100 MG, BID
  14. HALOPERIDOL (UNKNOWN) [Suspect]
     Active Substance: HALOPERIDOL
     Indication: HALLUCINATION, AUDITORY
     Dosage: 1 MG, TID
     Route: 048

REACTIONS (3)
  - Hepatotoxicity [Recovered/Resolved]
  - Drug level increased [Recovered/Resolved]
  - Drug interaction [Recovered/Resolved]
